FAERS Safety Report 5946789-1 (Version None)
Quarter: 2008Q4

REPORT INFORMATION
  Report Type: 
  Country: None (occurrence: None)
  Receive Date: 20081110
  Receipt Date: 20081030
  Transmission Date: 20090506
  Serious: Yes (Other)
  Sender: FDA-Public Use
  Company Number: SA-JNJFOC-20081101532

PATIENT

DRUGS (4)
  1. REOPRO [Suspect]
     Indication: THROMBOSIS IN DEVICE
  2. ASPIRIN [Suspect]
     Indication: THROMBOSIS IN DEVICE
  3. CLOPIDOGREL [Suspect]
  4. CLOPIDOGREL [Suspect]
     Indication: THROMBOSIS IN DEVICE
     Dosage: 300 OR 600 MG

REACTIONS (1)
  - RETROPERITONEAL HAEMORRHAGE [None]
